FAERS Safety Report 5263751-5 (Version None)
Quarter: 2007Q1

REPORT INFORMATION
  Report Type: 
  Country: None (occurrence: None)
  Receive Date: 20070313
  Receipt Date: 20070221
  Transmission Date: 20070707
  Serious: Yes (Hospitalization)
  Sender: FDA-Public Use
  Company Number: PHHO2007CL03527

PATIENT
  Age: 44 Year
  Sex: Female

DRUGS (3)
  1. ZELMAC / HTF 919A [Suspect]
     Indication: DIVERTICULUM
     Dosage: 1 TABLET/DAY
  2. GLAFORNIL [Concomitant]
  3. ENALAPRIL MALEATE [Concomitant]

REACTIONS (2)
  - CONSTIPATION [None]
  - ENEMA ADMINISTRATION [None]
